FAERS Safety Report 18420346 (Version 1)
Quarter: 2020Q4

REPORT INFORMATION
  Report Type: Spontaneous
  Country: US (occurrence: US)
  Receive Date: 20201023
  Receipt Date: 20201023
  Transmission Date: 20210114
  Serious: No
  Sender: FDA-Public Use
  Company Number: None

PATIENT
  Age: 45 Year
  Sex: Female
  Weight: 85 kg

DRUGS (1)
  1. FERRIC CARBOXYMALTOSE [Suspect]
     Active Substance: FERRIC CARBOXYMALTOSE
     Indication: IRON DEFICIENCY ANAEMIA
     Dosage: ?          OTHER FREQUENCY:ONCE A WEEK X2;?

REACTIONS (6)
  - Infusion related reaction [None]
  - Urticaria [None]
  - Rash [None]
  - Pruritus [None]
  - Throat irritation [None]
  - Dizziness [None]

NARRATIVE: CASE EVENT DATE: 20201020
